FAERS Safety Report 23865084 (Version 2)
Quarter: 2024Q4

REPORT INFORMATION
  Report Type: Spontaneous
  Country: US (occurrence: US)
  Receive Date: 20240516
  Receipt Date: 20241106
  Transmission Date: 20250114
  Serious: No
  Sender: ABBVIE
  Company Number: US-APIL-2312070US

PATIENT
  Sex: Female

DRUGS (2)
  1. PRED FORTE [Suspect]
     Active Substance: PREDNISOLONE ACETATE
     Indication: Product used for unknown indication
     Dosage: STRENGTH: 10 ML
     Route: 047
  2. PRED FORTE [Suspect]
     Active Substance: PREDNISOLONE ACETATE
     Dosage: STRENGTH: 10 ML
     Route: 047

REACTIONS (1)
  - No adverse event [Unknown]
